FAERS Safety Report 4355691-0 (Version None)
Quarter: 2004Q2

REPORT INFORMATION
  Report Type: 
  Country: None (occurrence: None)
  Receive Date: 20040505
  Receipt Date: 20040426
  Transmission Date: 20050107
  Serious: Yes (Other)
  Sender: FDA-Public Use
  Company Number: K200400637

PATIENT
  Age: 71 Year
  Sex: Male

DRUGS (11)
  1. ALTACE [Suspect]
     Indication: MYOCARDIAL INFARCTION
     Dosage: 5 MG, BID, ORAL;   7.5 MG, QD, ORAL
     Route: 048
     Dates: start: 20010730, end: 20031201
  2. ALTACE [Suspect]
     Indication: MYOCARDIAL INFARCTION
     Dosage: 5 MG, BID, ORAL;   7.5 MG, QD, ORAL
     Route: 048
     Dates: start: 20031203, end: 20031217
  3. ADRENALIN IN OIL INJ [Concomitant]
  4. RANITIDINE [Concomitant]
  5. CETIRIZINE HCL [Concomitant]
  6. ACETAMINOPHEN [Concomitant]
  7. NITROGLYCERIN [Concomitant]
  8. ASPIRIN [Concomitant]
  9. PRAVASTATIN [Concomitant]
  10. AQUEOUS CREAM (PARAFFIN, LIQUID, WHITE SOFT PARAFFIN, EMULSIFYING WAX) [Concomitant]
  11. OMEPRAZOLE [Concomitant]

REACTIONS (6)
  - CIRCULATORY COLLAPSE [None]
  - DIZZINESS [None]
  - FLUSHING [None]
  - HEADACHE [None]
  - PHARMACEUTICAL PRODUCT COMPLAINT [None]
  - SWELLING FACE [None]
